FAERS Safety Report 9732106 (Version 2)
Quarter: 2013Q4

REPORT INFORMATION
  Report Type: Spontaneous
  Country: GB (occurrence: GB)
  Receive Date: 20131205
  Receipt Date: 20131224
  Transmission Date: 20140711
  Serious: Yes (Hospitalization, Other)
  Sender: FDA-Public Use
  Company Number: PHFR2013GB006834

PATIENT
  Age: 48 Year
  Sex: Male

DRUGS (3)
  1. GILENYA [Suspect]
     Indication: MULTIPLE SCLEROSIS
     Dosage: 0.5 MG, QD
     Route: 048
     Dates: start: 2011
  2. BACLOFEN [Concomitant]
     Indication: MUSCLE SPASMS
     Dosage: 20 MG, BID
     Dates: start: 2011
  3. ADCAL D3 [Concomitant]
     Indication: PROPHYLAXIS
     Dosage: 1 DF, BID
     Dates: start: 2011

REACTIONS (13)
  - Cerebrovascular accident [Unknown]
  - Transient ischaemic attack [Recovering/Resolving]
  - Hypercholesterolaemia [Unknown]
  - Dysarthria [Recovering/Resolving]
  - Motor dysfunction [Unknown]
  - Aphasia [Unknown]
  - Musculoskeletal disorder [Unknown]
  - Demyelination [Unknown]
  - Multiple sclerosis relapse [Unknown]
  - Nuclear magnetic resonance imaging abnormal [Unknown]
  - Upper motor neurone lesion [Unknown]
  - Central nervous system lesion [Unknown]
  - Intention tremor [Unknown]
